FAERS Safety Report 5289976-0 (Version None)
Quarter: 2007Q1

REPORT INFORMATION
  Report Type: 
  Country: None (occurrence: None)
  Receive Date: 20070116
  Receipt Date: 20061107
  Transmission Date: 20070707
  Serious: Yes (Hospitalization, Other)
  Sender: FDA-Public Use
  Company Number: HQWYE095114JUL04

PATIENT
  Age: 70 Year
  Sex: Female
  Weight: 53.12 kg

DRUGS (2)
  1. PREMPRO [Suspect]
     Dates: start: 19981113, end: 20010817
  2. PREMARIN [Suspect]
     Dates: start: 19981113, end: 20010817

REACTIONS (1)
  - DEEP VEIN THROMBOSIS [None]
